FAERS Safety Report 7945739-6 (Version None)
Quarter: 2011Q4

REPORT INFORMATION
  Report Type: 
  Country: None (occurrence: None)
  Receive Date: 20111129
  Receipt Date: 20111116
  Transmission Date: 20120403
  Serious: Yes (Death, Life-Threatening, Other)
  Sender: FDA-Public Use
  Company Number: US-ELI_LILLY_AND_COMPANY-US201111003384

PATIENT
  Sex: Female
  Weight: 63 kg

DRUGS (25)
  1. CYMBALTA [Interacting]
     Dosage: 30 MG, QOD
     Route: 048
     Dates: start: 20111019, end: 20111025
  2. CYMBALTA [Interacting]
     Dosage: 30 MG, UNKNOWN
     Route: 048
     Dates: start: 20111028, end: 20111028
  3. AZILECT [Interacting]
     Dosage: 1 MG, QOD
     Route: 048
     Dates: start: 20111014, end: 20111020
  4. SINEMET [Concomitant]
     Indication: PARKINSON'S DISEASE
     Dosage: 2 DF, UNKNOWN
     Dates: start: 20090320, end: 20111028
  5. MILK OF MAGNESIA TAB [Concomitant]
     Dosage: UNK
     Dates: start: 20090320, end: 20111029
  6. DULCOLAX [Concomitant]
     Dosage: UNK
     Dates: start: 20090320, end: 20111028
  7. NITRODISC [Concomitant]
     Indication: ATRIAL FIBRILLATION
  8. CYMBALTA [Suspect]
     Indication: DEPRESSION
     Dosage: 60MG, QD
     Route: 048
     Dates: start: 20110915, end: 20111013
  9. CYMBALTA [Interacting]
     Dosage: 30 MG, QD
     Route: 048
     Dates: start: 20111025, end: 20111025
  10. MULTI-VITAMINS [Concomitant]
     Dosage: UNK
     Dates: start: 20101111, end: 20111028
  11. SENNA-S                            /01035001/ [Concomitant]
     Dosage: UNK
     Dates: start: 20110524, end: 20111028
  12. TRAZODONE HCL [Interacting]
     Dosage: 50 MG, QD
     Dates: start: 20110302, end: 20111013
  13. REQUIP [Concomitant]
     Indication: PARKINSON'S DISEASE
     Dosage: 0.25 MG, UNKNOWN
     Dates: start: 20090320, end: 20111028
  14. FIBER-LAX [Concomitant]
     Dosage: UNK
     Dates: start: 20110606, end: 20111028
  15. CYMBALTA [Interacting]
     Dosage: 30 MG, QD
     Route: 048
     Dates: start: 20111014, end: 20111017
  16. TRAZODONE HCL [Interacting]
     Indication: DEMENTIA
     Dosage: 75 MG, QD
     Route: 048
     Dates: end: 20111027
  17. TRAZODONE HCL [Interacting]
     Dosage: 25 MG, QD
     Route: 048
     Dates: start: 20110205, end: 20111013
  18. TRAZODONE HCL [Interacting]
     Dosage: 25 MG, BID
     Route: 048
     Dates: start: 20111014, end: 20111020
  19. TRAZODONE HCL [Interacting]
     Dosage: 25 MG, EACH EVENING
     Dates: start: 20090326, end: 20111018
  20. WARFARIN SODIUM [Concomitant]
     Dosage: 3 MG, UNKNOWN
     Dates: start: 20111005, end: 20111017
  21. TRAZODONE HCL [Interacting]
     Dosage: 25 MG, QD
     Route: 048
     Dates: start: 20111021, end: 20111027
  22. AZILECT [Interacting]
     Indication: PARKINSON'S DISEASE
     Dosage: 1 MG, QD
     Route: 048
     Dates: start: 20090320, end: 20111013
  23. COUMADIN [Concomitant]
     Indication: ATRIAL FIBRILLATION
     Dosage: 3 MG, UNK
     Dates: start: 20110929, end: 20111029
  24. RISPERDAL [Concomitant]
     Indication: DEMENTIA
     Dosage: 0.125 MG, UNKNOWN
     Dates: start: 20090912, end: 20111030
  25. TYLENOL                                 /SCH/ [Concomitant]
     Indication: PAIN
     Dosage: UNK
     Dates: start: 20091217, end: 20111028

REACTIONS (22)
  - DRUG INTERACTION [None]
  - LETHARGY [None]
  - DYSPHAGIA [None]
  - WHITE BLOOD CELL COUNT INCREASED [None]
  - HYPOPHAGIA [None]
  - SEROTONIN SYNDROME [None]
  - WEIGHT BEARING DIFFICULTY [None]
  - ASTHENIA [None]
  - URINE OUTPUT DECREASED [None]
  - BODY TEMPERATURE INCREASED [None]
  - BLOOD POTASSIUM DECREASED [None]
  - BLOOD UREA INCREASED [None]
  - BLOOD PRESSURE INCREASED [None]
  - HYPERNATRAEMIA [None]
  - URINARY INCONTINENCE [None]
  - LIVEDO RETICULARIS [None]
  - HYPERHIDROSIS [None]
  - DEATH [None]
  - COMA [None]
  - BLOOD CHLORIDE INCREASED [None]
  - PALLOR [None]
  - ERYTHEMA [None]
